FAERS Safety Report 17170061 (Version 3)
Quarter: 2020Q1

REPORT INFORMATION
  Report Type: Spontaneous
  Country: US (occurrence: US)
  Receive Date: 20191218
  Receipt Date: 20200108
  Transmission Date: 20200409
  Serious: Yes (Other)
  Sender: FDA-Public Use
  Company Number: US-VIIV HEALTHCARE LIMITED-US2019AMR228920

PATIENT
  Age: 54 Year
  Sex: Male

DRUGS (3)
  1. BIKTARVY [Suspect]
     Active Substance: BICTEGRAVIR SODIUM\EMTRICITABINE\TENOFOVIR ALAFENAMIDE FUMARATE
     Indication: PRODUCT USED FOR UNKNOWN INDICATION
     Dosage: UNK
     Route: 065
     Dates: start: 201904
  2. JULUCA [Suspect]
     Active Substance: DOLUTEGRAVIR SODIUM\RILPIVIRINE HYDROCHLORIDE
     Indication: HIV INFECTION
     Dosage: UNK
     Route: 065
     Dates: start: 201803, end: 201904
  3. ODEFSEY [Suspect]
     Active Substance: EMTRICITABINE\RILPIVIRINE HYDROCHLORIDE\TENOFOVIR ALAFENAMIDE FUMARATE
     Indication: VIRAL LOAD
     Dosage: UNK
     Route: 065
     Dates: start: 201605

REACTIONS (11)
  - Dysphonia [Unknown]
  - Streptococcal infection [Unknown]
  - Weight increased [Unknown]
  - Flat affect [Unknown]
  - Pancreatic failure [Unknown]
  - Pain [Unknown]
  - Asthma [Unknown]
  - Loss of consciousness [Unknown]
  - Abdominal discomfort [Unknown]
  - Nervous system disorder [Unknown]
  - Autonomic neuropathy [Unknown]

NARRATIVE: CASE EVENT DATE: 201906
